FAERS Safety Report 6164110-3 (Version None)
Quarter: 2009Q2

REPORT INFORMATION
  Report Type: 
  Country: None (occurrence: None)
  Receive Date: 20090422
  Receipt Date: 20090417
  Transmission Date: 20091009
  Serious: Yes (Hospitalization)
  Sender: FDA-Public Use
  Company Number: B0569581A

PATIENT
  Sex: Female

DRUGS (4)
  1. PAXIL [Suspect]
     Indication: LISTLESS
     Dosage: 5MG TWICE PER DAY
     Route: 048
     Dates: start: 20080815, end: 20081001
  2. AMOXAN [Concomitant]
     Indication: LISTLESS
     Dosage: 20MG PER DAY
     Route: 048
     Dates: start: 19981030, end: 20080927
  3. PA [Concomitant]
     Indication: NASOPHARYNGITIS
     Route: 048
     Dates: start: 20080906, end: 20080927
  4. LEVOTOMIN [Concomitant]
     Indication: INSOMNIA
     Dosage: 2MG PER DAY
     Route: 048
     Dates: start: 20080712, end: 20081001

REACTIONS (3)
  - IMPULSIVE BEHAVIOUR [None]
  - OVERDOSE [None]
  - SUICIDE ATTEMPT [None]
